FAERS Safety Report 23051350 (Version 1)
Quarter: 2023Q4

REPORT INFORMATION
  Report Type: Spontaneous
  Country: US (occurrence: US)
  Receive Date: 20231010
  Receipt Date: 20231010
  Transmission Date: 20240110
  Serious: Yes (Hospitalization, Other)
  Sender: FDA-Public Use
  Company Number: US-009507513-2310USA000746

PATIENT
  Age: 60 Year
  Sex: Male

DRUGS (1)
  1. KEYTRUDA [Suspect]
     Active Substance: PEMBROLIZUMAB
     Indication: Lung cancer metastatic
     Dosage: TWO CYCLES 10 WEEKS APART

REACTIONS (3)
  - Renal tubular necrosis [Unknown]
  - Immune-mediated nephritis [Unknown]
  - Inappropriate schedule of product administration [Unknown]
